FAERS Safety Report 5822267-5 (Version None)
Quarter: 2008Q3

REPORT INFORMATION
  Report Type: 
  Country: None (occurrence: None)
  Receive Date: 20080723
  Receipt Date: 20080723
  Transmission Date: 20090109
  Serious: Yes (Other)
  Sender: FDA-Public Use
  Company Number: None

PATIENT
  Sex: Female
  Weight: 63.5036 kg

DRUGS (1)
  1. MELOXICAM [Suspect]
     Indication: SLE ARTHRITIS
     Dosage: 15 MG QD PO
     Route: 048
     Dates: start: 20080626, end: 20080722

REACTIONS (5)
  - BURNING SENSATION [None]
  - MUSCULAR WEAKNESS [None]
  - MYOSITIS [None]
  - PAIN [None]
  - PARAESTHESIA [None]
